FAERS Safety Report 4275382-4 (Version None)
Quarter: 2004Q1

REPORT INFORMATION
  Report Type: 
  Country: None (occurrence: None)
  Receive Date: 20040116
  Receipt Date: 20040113
  Transmission Date: 20041129
  Serious: Yes (Death)
  Sender: FDA-Public Use
  Company Number: KII-2002-0000309

PATIENT
  Sex: Female

DRUGS (4)
  1. OXYCONTIN [Suspect]
     Indication: CANCER PAIN
  2. MORPHINE SULFATE [Suspect]
     Indication: CANCER PAIN
  3. DURAGESIC [Suspect]
     Indication: CANCER PAIN
  4. SENOKOT [Concomitant]

REACTIONS (1)
  - DEATH [None]
